FAERS Safety Report 6983511-4 (Version None)
Quarter: 2010Q3

REPORT INFORMATION
  Report Type: 
  Country: None (occurrence: None)
  Receive Date: 20100914
  Receipt Date: 20080729
  Transmission Date: 20110219
  Serious: No
  Sender: FDA-Public Use
  Company Number: US-WYE-H05312108

PATIENT
  Age: 66 Year
  Sex: Male
  Weight: 79.45 kg

DRUGS (5)
  1. ADVIL LIQUI-GELS [Suspect]
     Indication: NECK PAIN
     Route: 048
     Dates: start: 20080725
  2. ADVIL LIQUI-GELS [Suspect]
     Indication: MUSCULOSKELETAL PAIN
  3. FUROSEMIDE [Concomitant]
  4. SPIRONOLACTONE [Concomitant]
  5. PRANDIN [Concomitant]

REACTIONS (1)
  - FAECES DISCOLOURED [None]
